FAERS Safety Report 23860068 (Version 1)
Quarter: 2024Q2

REPORT INFORMATION
  Report Type: Spontaneous
  Country: US (occurrence: US)
  Receive Date: 20240515
  Receipt Date: 20240515
  Transmission Date: 20240716
  Serious: No
  Sender: FDA-Public Use
  Company Number: US-SA-SAC20240511000347

PATIENT
  Sex: Female
  Weight: 67 kg

DRUGS (5)
  1. KEVZARA [Suspect]
     Active Substance: SARILUMAB
     Indication: Rheumatoid arthritis
     Dosage: 200 MG, QOW
     Route: 058
     Dates: start: 20240223
  2. CELEBREX [Concomitant]
     Active Substance: CELECOXIB
  3. LISINOPRIL [Concomitant]
     Active Substance: LISINOPRIL
  4. SULFASALAZINE [Concomitant]
     Active Substance: SULFASALAZINE
  5. PREDNISONE [Concomitant]
     Active Substance: PREDNISONE

REACTIONS (3)
  - Injection site swelling [Unknown]
  - Injection site pain [Unknown]
  - Pruritus [Unknown]
